FAERS Safety Report 12820548 (Version 2)
Quarter: 2016Q4

REPORT INFORMATION
  Report Type: Spontaneous
  Country: JP (occurrence: JP)
  Receive Date: 20161007
  Receipt Date: 20161219
  Transmission Date: 20170207
  Serious: Yes (Other)
  Sender: FDA-Public Use
  Company Number: JP-AMGEN-JPNSP2016138250

PATIENT

DRUGS (3)
  1. VECTIBIX [Suspect]
     Active Substance: PANITUMUMAB
     Indication: COLORECTAL CANCER METASTATIC
     Dosage: 6 MG/KG, Q2WEEKS
     Route: 041
  2. IRINOTECAN HYDROCHLORIDE. [Concomitant]
     Active Substance: IRINOTECAN HYDROCHLORIDE
     Indication: COLORECTAL CANCER METASTATIC
     Dosage: 100 MG/M2, Q2WEEKS
     Route: 041
  3. TS-1 [Concomitant]
     Active Substance: GIMERACIL\OTERACIL\TEGAFUR
     Indication: COLORECTAL CANCER METASTATIC
     Dosage: UNK, BID
     Route: 048

REACTIONS (19)
  - Diarrhoea [Unknown]
  - Dermatitis acneiform [Unknown]
  - Anaemia [Unknown]
  - Alanine aminotransferase increased [Unknown]
  - Febrile neutropenia [Recovered/Resolved]
  - Decreased appetite [Unknown]
  - Platelet count decreased [Unknown]
  - Stomatitis [Unknown]
  - Hypocalcaemia [Unknown]
  - Hypoalbuminaemia [Unknown]
  - Hypomagnesaemia [Unknown]
  - Paronychia [Unknown]
  - Neutrophil count decreased [Unknown]
  - Aspartate aminotransferase increased [Unknown]
  - Rash [Unknown]
  - Dehydration [Unknown]
  - White blood cell count decreased [Unknown]
  - Fatigue [Unknown]
  - Dry skin [Unknown]
